FAERS Safety Report 4600912-X (Version None)
Quarter: 2005Q1

REPORT INFORMATION
  Report Type: 
  Country: None (occurrence: None)
  Receive Date: 20050127
  Receipt Date: 20041021
  Transmission Date: 20050727
  Serious: No
  Sender: FDA-Public Use
  Company Number: USA041081903

PATIENT
  Age: 53 Year
  Sex: Female
  Weight: 64 kg

DRUGS (3)
  1. STRATTERA [Suspect]
     Indication: ATTENTION DEFICIT/HYPERACTIVITY DISORDER
     Dosage: 10 MG/1 DAY
  2. CLONIDINE [Concomitant]
  3. CELEXA [Concomitant]

REACTIONS (3)
  - DECREASED APPETITE [None]
  - HERPES SIMPLEX [None]
  - RHINORRHOEA [None]
